FAERS Safety Report 12939059 (Version 3)
Quarter: 2017Q3

REPORT INFORMATION
  Report Type: Spontaneous
  Country: US (occurrence: US)
  Receive Date: 20161115
  Receipt Date: 20170905
  Transmission Date: 20171127
  Serious: No
  Sender: FDA-Public Use
  Company Number: US-ALEXION PHARMACEUTICALS INC.-A201607611

PATIENT
  Age: 23 Year
  Sex: Female

DRUGS (7)
  1. MYCOPHENOLATE [Concomitant]
     Active Substance: MYCOPHENOLIC ACID
     Indication: PRODUCT USED FOR UNKNOWN INDICATION
     Route: 065
  2. SOLIRIS [Suspect]
     Active Substance: ECULIZUMAB
     Indication: OFF LABEL USE
     Dosage: 900 MG, QW FOR FOUR WEEKS
     Route: 042
  3. SOLIRIS [Suspect]
     Active Substance: ECULIZUMAB
     Dosage: 1200 MG, Q2W
  4. RITUXAN [Concomitant]
     Active Substance: RITUXIMAB
     Indication: TRANSPLANT REJECTION
     Dosage: UNK
     Route: 065
  5. IVIGLOB EX [Concomitant]
     Active Substance: HUMAN IMMUNOGLOBULIN G
     Indication: TRANSPLANT REJECTION
     Dosage: UNK
     Route: 065
  6. SOLIRIS [Suspect]
     Active Substance: ECULIZUMAB
     Indication: TRANSPLANT REJECTION
     Dosage: 1200 MG, UNK
     Route: 042
  7. BORTEZOMIB [Concomitant]
     Active Substance: BORTEZOMIB
     Indication: TRANSPLANT REJECTION
     Dosage: UNK
     Route: 065

REACTIONS (5)
  - Laboratory test abnormal [Unknown]
  - Lymphopenia [Unknown]
  - Migraine [Recovered/Resolved]
  - Off label use [Unknown]
  - General physical health deterioration [Unknown]

NARRATIVE: CASE EVENT DATE: 201610
